FAERS Safety Report 9004754 (Version 1)
Quarter: 2013Q1

REPORT INFORMATION
  Report Type: Spontaneous
  Country: US (occurrence: None)
  Receive Date: 20130107
  Receipt Date: 20130107
  Transmission Date: 20140127
  Serious: No
  Sender: FDA-Public Use
  Company Number: None

PATIENT
  Age: 79 Year
  Sex: Female
  Weight: 74.84 kg

DRUGS (2)
  1. METOPROLOL [Suspect]
     Indication: CORONARY ARTERY BYPASS
     Dosage: 1/2 TABLET BY MOUTH 2X A DAY
     Route: 048
     Dates: start: 20100120, end: 201207
  2. CARTIA XT [Suspect]

REACTIONS (1)
  - Hallucination, visual [None]
